FAERS Safety Report 9720604 (Version 1)
Quarter: 2013Q4

REPORT INFORMATION
  Report Type: Spontaneous
  Country: DK (occurrence: DK)
  Receive Date: 20131129
  Receipt Date: 20131129
  Transmission Date: 20140711
  Serious: No
  Sender: FDA-Public Use
  Company Number: PHHY2013DK134005

PATIENT
  Age: 39 Year
  Sex: Male
  Weight: 119 kg

DRUGS (2)
  1. TASIGNA [Suspect]
     Indication: CHRONIC MYELOID LEUKAEMIA
     Dosage: 400 MG, BID
     Route: 048
     Dates: start: 20120221
  2. SIMVASTATIN ACTAVIS [Concomitant]
     Indication: BLOOD CHOLESTEROL INCREASED
     Dates: start: 20120118

REACTIONS (1)
  - Tooth erosion [Not Recovered/Not Resolved]
